FAERS Safety Report 6006386-9 (Version None)
Quarter: 2008Q4

REPORT INFORMATION
  Report Type: 
  Country: None (occurrence: None)
  Receive Date: 20081217
  Receipt Date: 20081029
  Transmission Date: 20090506
  Serious: No
  Sender: FDA-Public Use
  Company Number: US-BAYER-200814231BCC

PATIENT
  Age: 52 Year
  Sex: Male
  Weight: 84 kg

DRUGS (3)
  1. ALEVE [Suspect]
     Indication: ARTHRALGIA
     Dosage: UNIT DOSE: 220 MG
     Dates: start: 20081008
  2. ALEVE [Suspect]
     Dates: start: 20081028
  3. LIPITOR [Concomitant]

REACTIONS (1)
  - ARTHRALGIA [None]
